FAERS Safety Report 19767318 (Version 1)
Quarter: 2021Q3

REPORT INFORMATION
  Report Type: Spontaneous
  Country: US (occurrence: US)
  Receive Date: 20210827
  Receipt Date: 20210827
  Transmission Date: 20211014
  Serious: No
  Sender: FDA-Public Use
  Company Number: None

PATIENT
  Sex: Female

DRUGS (1)
  1. IBRANCE [Suspect]
     Active Substance: PALBOCICLIB
     Indication: BREAST CANCER
     Dosage: FROM 125MG TO 75MG DAILY ON DAYS 1?21 OF 28 DAY CYCLE. (SAME CYCLE AS 125MG, JUST LOWER DOSE]
     Route: 048
     Dates: start: 202104

REACTIONS (1)
  - Myelosuppression [None]
